FAERS Safety Report 7969115-5 (Version None)
Quarter: 2011Q4

REPORT INFORMATION
  Report Type: 
  Country: None (occurrence: None)
  Receive Date: 20111209
  Receipt Date: 20111207
  Transmission Date: 20120403
  Serious: Yes (Other)
  Sender: FDA-Public Use
  Company Number: US-ABBOTT-11P-163-0867556-00

PATIENT
  Sex: Male
  Weight: 79.45 kg

DRUGS (14)
  1. PERCOCET [Concomitant]
     Indication: PAIN
  2. METOPROLOL TARTRATE [Concomitant]
     Indication: HYPERTENSION
  3. ZANTAC [Concomitant]
     Indication: GASTROOESOPHAGEAL REFLUX DISEASE
  4. LEVOTHYROXINE SODIUM [Concomitant]
     Indication: HYPOTHYROIDISM
  5. IRON [Concomitant]
     Indication: MINERAL SUPPLEMENTATION
  6. DOCUSATE [Concomitant]
     Indication: PRODUCT USED FOR UNKNOWN INDICATION
  7. GABAPENTIN [Concomitant]
     Indication: PAIN
  8. TERIPARATIDE [Concomitant]
     Indication: OSTEOPOROSIS
     Route: 058
  9. METHOTREXATE [Concomitant]
     Indication: RHEUMATOID ARTHRITIS
  10. VITAMIN B-12 [Concomitant]
     Indication: PRODUCT USED FOR UNKNOWN INDICATION
     Route: 058
  11. OXYBUTYNIN [Concomitant]
     Indication: URINARY INCONTINENCE
  12. CALCIUM WITH VITAMIN D [Concomitant]
     Indication: OSTEOPOROSIS
  13. HUMIRA [Suspect]
     Indication: RHEUMATOID ARTHRITIS
     Route: 058
     Dates: start: 20030501
  14. FOLIC ACID [Concomitant]
     Indication: RHEUMATOID ARTHRITIS

REACTIONS (1)
  - AORTIC VALVE STENOSIS [None]
